FAERS Safety Report 5515369-4 (Version None)
Quarter: 2007Q4

REPORT INFORMATION
  Report Type: 
  Country: None (occurrence: None)
  Receive Date: 20071109
  Receipt Date: 20071025
  Transmission Date: 20080405
  Serious: Yes (Death)
  Sender: FDA-Public Use
  Company Number: GXKR2007US09188

PATIENT

DRUGS (4)
  1. BENZYLPENICILLIN (NGX)(BENZYLPENICILLIN) UNKNOWN [Suspect]
     Dosage: TRANSPLACENTAL
     Route: 064
  2. AMOXICILLIN TRIHYDRATE [Suspect]
  3. LEVOTHYROXINE SODIUM [Concomitant]
  4. EPINEPHRINE [Concomitant]

REACTIONS (5)
  - ASPHYXIA [None]
  - CAESAREAN SECTION [None]
  - DRUG EXPOSURE DURING PREGNANCY [None]
  - FOETAL DISORDER [None]
  - INTRA-UTERINE DEATH [None]
